FAERS Safety Report 9692549 (Version 1)
Quarter: 2013Q4

REPORT INFORMATION
  Report Type: Spontaneous
  Country: US (occurrence: US)
  Receive Date: 20131118
  Receipt Date: 20131118
  Transmission Date: 20140711
  Serious: Yes (Other)
  Sender: FDA-Public Use
  Company Number: US-BAYER-2013-138642

PATIENT
  Age: 29 Year
  Sex: Female

DRUGS (10)
  1. YAZ [Suspect]
     Dosage: UNK
  2. ZYRTEC [Concomitant]
     Dosage: 10 MG, UNK
     Route: 048
  3. XOPENEX [Concomitant]
  4. MOTRIN [Concomitant]
     Dosage: 600 MG, UNK
     Route: 048
  5. EPIPEN [Concomitant]
     Dosage: 0.3 MG, UNK
  6. TRIAMTERENE AND HYDROCHLOROTHIAZIDE [Concomitant]
     Dosage: UNK
     Route: 048
  7. ASTELIN [Concomitant]
     Dosage: 137 MCG, UNK
     Route: 045
  8. LORTAB [Concomitant]
     Dosage: 5 /500, UNK
     Route: 048
  9. MAXZIDE [Concomitant]
     Indication: HYPERTENSION
     Dosage: UNK
  10. PENICILLIN VK [Concomitant]
     Dosage: 500 MG, UNK

REACTIONS (1)
  - Thrombophlebitis superficial [Recovering/Resolving]
